FAERS Safety Report 7472867-4 (Version None)
Quarter: 2011Q2

REPORT INFORMATION
  Report Type: 
  Country: None (occurrence: None)
  Receive Date: 20110511
  Receipt Date: 20110426
  Transmission Date: 20111010
  Serious: Yes (Other)
  Sender: FDA-Public Use
  Company Number: GB-PFIZER INC-2011086119

PATIENT
  Age: 38 Year
  Sex: Male

DRUGS (1)
  1. LYRICA [Suspect]
     Dosage: 200 MG, 3X/DAY

REACTIONS (4)
  - HYPOGLYCAEMIA [None]
  - DRUG ABUSE [None]
  - DIZZINESS [None]
  - HYPOTENSION [None]
